FAERS Safety Report 24536692 (Version 2)
Quarter: 2024Q4

REPORT INFORMATION
  Report Type: Spontaneous
  Country: US (occurrence: US)
  Receive Date: 20241022
  Receipt Date: 20241127
  Transmission Date: 20250114
  Serious: No
  Sender: SANOFI AVENTIS
  Company Number: US-SA-2024SA301360

PATIENT
  Age: 76 Year
  Sex: Female
  Weight: 83.14 kg

DRUGS (1)
  1. KEVZARA [Suspect]
     Active Substance: SARILUMAB
     Indication: Polymyalgia rheumatica
     Dosage: 200 MG, QOW
     Route: 058
     Dates: start: 20240927, end: 2024

REACTIONS (2)
  - Arthralgia [Unknown]
  - Blister [Unknown]

NARRATIVE: CASE EVENT DATE: 20240101
